FAERS Safety Report 5930380-7 (Version None)
Quarter: 2008Q4

REPORT INFORMATION
  Report Type: 
  Country: None (occurrence: None)
  Receive Date: 20081023
  Receipt Date: 20060822
  Transmission Date: 20090506
  Serious: Yes (Other)
  Sender: FDA-Public Use
  Company Number: 2006AL002576

PATIENT
  Age: 38 Year
  Sex: Female

DRUGS (4)
  1. NIFEDIPINE [Suspect]
     Indication: TOCOLYSIS
     Dosage: 20 MG;Q8H;PO
     Route: 048
  2. NIFEDIPINE [Suspect]
     Indication: TOCOLYSIS
     Dosage: 30 MG;X1;PO
     Route: 048
  3. BETAMETHASONE [Concomitant]
  4. NIFEDEPINE TABLETS SLOW RELEASE [Concomitant]

REACTIONS (5)
  - ATRIAL FIBRILLATION [None]
  - BLOOD POTASSIUM DECREASED [None]
  - CHEST PAIN [None]
  - DRUG EXPOSURE DURING PREGNANCY [None]
  - PALPITATIONS [None]
